FAERS Safety Report 10418514 (Version 5)
Quarter: 2016Q4

REPORT INFORMATION
  Report Type: Report from Study
  Country: AU (occurrence: AU)
  Receive Date: 20140829
  Receipt Date: 20161021
  Transmission Date: 20170206
  Serious: Yes (Death)
  Sender: FDA-Public Use
  Company Number: AU-ROCHE-1455796

PATIENT
  Age: 65 Year
  Sex: Female

DRUGS (6)
  1. CAPECITABINE. [Suspect]
     Active Substance: CAPECITABINE
     Indication: NEUROENDOCRINE TUMOUR
     Dosage: 14 DAYS FOR 4 CYCLES
     Route: 048
  2. SYNTHAMIN [Concomitant]
     Active Substance: AMINO ACIDS
     Route: 065
  3. TEMOZOLOMIDE. [Suspect]
     Active Substance: TEMOZOLOMIDE
     Indication: NEUROENDOCRINE TUMOUR
     Dosage: THE LAST 5 DAYS OF EACH 14-DAY CAPECITABINE PERIOD (4 CYCLE COURSE)
     Route: 048
  4. TROPISETRON [Concomitant]
     Active Substance: TROPISETRON
     Route: 042
  5. SUNITINIB [Suspect]
     Active Substance: SUNITINIB
     Indication: PRODUCT USED FOR UNKNOWN INDICATION
     Route: 065
  6. LORAZEPAM. [Concomitant]
     Active Substance: LORAZEPAM
     Route: 048

REACTIONS (1)
  - Myelodysplastic syndrome [Fatal]
